FAERS Safety Report 5949678-1 (Version None)
Quarter: 2008Q4

REPORT INFORMATION
  Report Type: 
  Country: None (occurrence: None)
  Receive Date: 20081112
  Receipt Date: 20081103
  Transmission Date: 20090506
  Serious: Yes (Hospitalization)
  Sender: FDA-Public Use
  Company Number: FR-CELGENEUS-056-21880-08081288

PATIENT
  Sex: Male

DRUGS (4)
  1. REVLIMID [Suspect]
     Indication: AMYLOIDOSIS
     Dates: start: 20080812, end: 20080819
  2. ALKERAN [Suspect]
     Indication: AMYLOIDOSIS
     Route: 048
     Dates: start: 20080812, end: 20080815
  3. DEXAMETHASONE 0.5MG TAB [Suspect]
     Indication: AMYLOIDOSIS
     Route: 065
     Dates: start: 20080812, end: 20080815
  4. HEPARIN [Concomitant]
     Indication: THROMBOSIS PROPHYLAXIS
     Route: 065

REACTIONS (1)
  - ACUTE CORONARY SYNDROME [None]
